FAERS Safety Report 10697748 (Version 1)
Quarter: 2015Q1

REPORT INFORMATION
  Report Type: Spontaneous
  Country: NL (occurrence: NL)
  Receive Date: 20150108
  Receipt Date: 20150108
  Transmission Date: 20150721
  Serious: Yes (Death, Other)
  Sender: FDA-Public Use
  Company Number: NL-PFIZER INC-2014359906

PATIENT
  Age: 51 Year
  Sex: Female

DRUGS (1)
  1. REVATIO [Suspect]
     Active Substance: SILDENAFIL CITRATE
     Dosage: 1 TABLET, 20 MG, 3X/DAY
     Dates: start: 20111123

REACTIONS (1)
  - Death [Fatal]

NARRATIVE: CASE EVENT DATE: 20141202
